FAERS Safety Report 11844233 (Version 4)
Quarter: 2016Q1

REPORT INFORMATION
  Report Type: Spontaneous
  Country: JP (occurrence: JP)
  Receive Date: 20151217
  Receipt Date: 20160325
  Transmission Date: 20160526
  Serious: Yes (Hospitalization)
  Sender: FDA-Public Use
  Company Number: JP-ASTRAZENECA-2015SF26809

PATIENT
  Age: 15005 Day
  Sex: Male
  Weight: 55 kg

DRUGS (31)
  1. SEROQUEL [Suspect]
     Active Substance: QUETIAPINE FUMARATE
     Route: 048
  2. SEROQUEL [Suspect]
     Active Substance: QUETIAPINE FUMARATE
     Route: 048
     Dates: start: 20140821, end: 20140827
  3. LEVOFLOXACIN. [Concomitant]
     Active Substance: LEVOFLOXACIN
     Dosage: DOSE UNKNOWN
     Route: 065
     Dates: start: 20140901
  4. OMEPRAZOLE. [Concomitant]
     Active Substance: OMEPRAZOLE
     Route: 042
     Dates: start: 20140820, end: 20140821
  5. CERCINE [Concomitant]
     Active Substance: DIAZEPAM
     Route: 048
     Dates: start: 20140820, end: 20140822
  6. CORETEC [Concomitant]
     Dosage: 20 MG NUMBER OF SEPARATE DOSAGES UNKNOWN
     Route: 042
     Dates: start: 20140820, end: 20140820
  7. CORETEC [Concomitant]
     Route: 042
     Dates: start: 20140821, end: 20140821
  8. FENTANYL. [Concomitant]
     Active Substance: FENTANYL
     Dosage: 0.1 MG EVERY DAY, 5A
     Route: 042
     Dates: start: 20140820, end: 20140827
  9. PROPOFOL. [Concomitant]
     Active Substance: PROPOFOL
     Dosage: DOSE UNKNOWN
     Route: 065
     Dates: start: 20140820, end: 20140827
  10. PRECEDEX [Suspect]
     Active Substance: DEXMEDETOMIDINE HYDROCHLORIDE
     Dosage: DOSE UNKNOWN
     Route: 042
     Dates: start: 20140819, end: 20140820
  11. NEO-MINOPHAGEN C [Concomitant]
     Active Substance: AMMONIUM GLYCYRRHIZATE
     Dosage: 20 ML EVERY DAY 2A
     Route: 042
     Dates: start: 20140825, end: 20140827
  12. CORETEC [Concomitant]
     Route: 042
     Dates: start: 20140819, end: 20140819
  13. MIDAZOLAM [Concomitant]
     Active Substance: MIDAZOLAM\MIDAZOLAM HYDROCHLORIDE
     Dosage: DOSE UNKNOWN
     Route: 065
     Dates: start: 20140819, end: 20140826
  14. PRECEDEX [Suspect]
     Active Substance: DEXMEDETOMIDINE HYDROCHLORIDE
     Dosage: DOSE UNKNOWN
     Route: 042
     Dates: start: 20140823, end: 20140827
  15. DIAZEPAM. [Concomitant]
     Active Substance: DIAZEPAM
     Dosage: DOSE UNKNOWN
     Route: 065
     Dates: start: 20140821, end: 20140821
  16. URSO [Concomitant]
     Active Substance: URSODIOL
     Route: 048
     Dates: start: 20140823
  17. NEXIUM [Suspect]
     Active Substance: ESOMEPRAZOLE MAGNESIUM
     Indication: STRESS ULCER
     Route: 048
     Dates: start: 20140822, end: 20140904
  18. SULBACSIN [Suspect]
     Active Substance: AMPICILLIN SODIUM\SULBACTAM SODIUM
     Indication: ANTIBIOTIC PROPHYLAXIS
     Route: 042
     Dates: start: 20140819, end: 20140822
  19. CEFTRIAXONE. [Suspect]
     Active Substance: CEFTRIAXONE
     Indication: KLEBSIELLA INFECTION
     Route: 042
     Dates: start: 20140827, end: 20140829
  20. FENTANYL. [Concomitant]
     Active Substance: FENTANYL
     Dosage: 0.1 MG EVERY DAY, 3A
     Route: 042
     Dates: start: 20140819, end: 20140819
  21. REBAMIPIDE [Concomitant]
     Active Substance: REBAMIPIDE
     Dosage: DOSE UNKNOWN
     Route: 065
     Dates: start: 20140822, end: 20140822
  22. CALONAL [Suspect]
     Active Substance: ACETAMINOPHEN
     Route: 048
     Dates: start: 20140822, end: 20140831
  23. OMEPRAZOLE. [Concomitant]
     Active Substance: OMEPRAZOLE
     Route: 042
     Dates: start: 20140819, end: 20140819
  24. NEO-MINOPHAGEN C [Concomitant]
     Active Substance: AMMONIUM GLYCYRRHIZATE
     Dosage: 20 ML EVERY DAY 1A
     Route: 042
     Dates: start: 20140819, end: 20140825
  25. FLUNITRAZEPAM [Concomitant]
     Active Substance: FLUNITRAZEPAM
     Dosage: DOSE UNKNOWN
     Route: 065
     Dates: start: 20140823, end: 20140823
  26. CERCINE [Concomitant]
     Active Substance: DIAZEPAM
     Route: 048
     Dates: start: 20140822, end: 20140822
  27. CERCINE [Concomitant]
     Active Substance: DIAZEPAM
     Route: 048
     Dates: start: 20140823, end: 20140910
  28. RISPERDAL [Concomitant]
     Active Substance: RISPERIDONE
     Dosage: 2 DF,  NUMBER OF SEPARATE DOSAGES UNKNOWN
     Route: 048
     Dates: start: 20140823, end: 20140827
  29. CEFOTIAM HYDROCHLORIDE [Suspect]
     Active Substance: CEFOTIAM HYDROCHLORIDE
     Indication: KLEBSIELLA INFECTION
     Route: 042
     Dates: start: 20140830, end: 20140831
  30. AZITHROMYCIN ANHYDROUS. [Concomitant]
     Active Substance: AZITHROMYCIN ANHYDROUS
     Dosage: DOSE UNKNOWN
     Route: 065
     Dates: start: 20140830, end: 20140831
  31. LOXOPROFEN [Concomitant]
     Active Substance: LOXOPROFEN
     Dosage: DOSE UNKNOWN
     Route: 065
     Dates: start: 20140822, end: 20140822

REACTIONS (2)
  - Intentional product misuse [Unknown]
  - Eosinophilic pneumonia [Recovered/Resolved]

NARRATIVE: CASE EVENT DATE: 20140825
